FAERS Safety Report 15340784 (Version 1)
Quarter: 2018Q3

REPORT INFORMATION
  Report Type: Spontaneous
  Country: US (occurrence: US)
  Receive Date: 20180831
  Receipt Date: 20180831
  Transmission Date: 20181010
  Serious: No
  Sender: FDA-Public Use
  Company Number: US-SA-2018SA011246

PATIENT
  Sex: Male

DRUGS (2)
  1. DULCOLAX NOS [Suspect]
     Active Substance: BISACODYL OR DOCUSATE SODIUM
     Dosage: UNK UNK,UNK
     Route: 065
  2. DULCOLAX NOS [Suspect]
     Active Substance: BISACODYL OR DOCUSATE SODIUM
     Dosage: 5 DF
     Route: 048

REACTIONS (4)
  - Therapeutic response decreased [Unknown]
  - Abdominal distension [Unknown]
  - Abdominal discomfort [Unknown]
  - Extra dose administered [Unknown]
